FAERS Safety Report 5181527-4 (Version None)
Quarter: 2006Q4

REPORT INFORMATION
  Report Type: 
  Country: None (occurrence: None)
  Receive Date: 20061220
  Receipt Date: 20060126
  Transmission Date: 20070319
  Serious: Yes (Other)
  Sender: FDA-Public Use
  Company Number: US-GLAXOSMITHKLINE-A0590984A

PATIENT
  Age: 78 Year
  Sex: Female

DRUGS (2)
  1. COMMIT [Suspect]
     Dosage: 4MG SIX TIMES PER DAY
  2. NICORETTE [Suspect]

REACTIONS (2)
  - DRUG ABUSER [None]
  - PHARMACEUTICAL PRODUCT COMPLAINT [None]
